FAERS Safety Report 6360063-3 (Version None)
Quarter: 2009Q3

REPORT INFORMATION
  Report Type: 
  Country: None (occurrence: None)
  Receive Date: 20090917
  Receipt Date: 20090909
  Transmission Date: 20100115
  Serious: Yes (Other)
  Sender: FDA-Public Use
  Company Number: JP-BAXTER-2009BH014113

PATIENT
  Age: 33 Year
  Sex: Male

DRUGS (4)
  1. ENDOXAN BAXTER [Suspect]
     Indication: B-CELL LYMPHOMA
     Route: 065
  2. ADRIACIN [Suspect]
     Indication: B-CELL LYMPHOMA
     Route: 065
  3. VINCRISTINE SULFATE GENERIC [Suspect]
     Indication: B-CELL LYMPHOMA
     Route: 065
  4. PREDNISOLONE [Concomitant]
     Indication: B-CELL LYMPHOMA
     Route: 065

REACTIONS (1)
  - PRIMITIVE NEUROECTODERMAL TUMOUR [None]
